FAERS Safety Report 7149499-0 (Version None)
Quarter: 2010Q4

REPORT INFORMATION
  Report Type: 
  Country: None (occurrence: None)
  Receive Date: 20101209
  Receipt Date: 20101125
  Transmission Date: 20110411
  Serious: Yes (Other)
  Sender: FDA-Public Use
  Company Number: LB-GENENTECH-309792

PATIENT

DRUGS (1)
  1. SOMATROPIN [Suspect]
     Indication: GROWTH RETARDATION

REACTIONS (1)
  - OSTEONECROSIS [None]
